FAERS Safety Report 16948408 (Version 1)
Quarter: 2019Q4

REPORT INFORMATION
  Report Type: Report from Study
  Country: None (occurrence: DE)
  Receive Date: 20191022
  Receipt Date: 20191022
  Transmission Date: 20200122
  Serious: Yes (Other)
  Sender: FDA-Public Use
  Company Number: DE-ABBVIE-19K-062-2967000-00

PATIENT
  Age: 29 Year
  Sex: Female

DRUGS (2)
  1. HUMIRA [Suspect]
     Active Substance: ADALIMUMAB
     Route: 058
     Dates: start: 201903
  2. HUMIRA [Suspect]
     Active Substance: ADALIMUMAB
     Indication: COLITIS ULCERATIVE
     Route: 058
     Dates: start: 20140115, end: 201405

REACTIONS (10)
  - Premature baby [Unknown]
  - Injection site erythema [Not Recovered/Not Resolved]
  - Maternal exposure during pregnancy [Unknown]
  - Suppressed lactation [Unknown]
  - Nasopharyngitis [Not Recovered/Not Resolved]
  - Live birth [Unknown]
  - Injection site pain [Not Recovered/Not Resolved]
  - Caesarean section [Unknown]
  - Drug ineffective [Recovered/Resolved]
  - Injection site pruritus [Not Recovered/Not Resolved]

NARRATIVE: CASE EVENT DATE: 2014
